FAERS Safety Report 5805541-8 (Version None)
Quarter: 2008Q3

REPORT INFORMATION
  Report Type: 
  Country: None (occurrence: None)
  Receive Date: 20080710
  Receipt Date: 20080703
  Transmission Date: 20090109
  Serious: Yes (Hospitalization)
  Sender: FDA-Public Use
  Company Number: US-AMGEN-QUU292038

PATIENT
  Sex: Male

DRUGS (1)
  1. ENBREL [Suspect]
     Indication: PSORIATIC ARTHROPATHY
     Route: 058
     Dates: start: 20070504

REACTIONS (5)
  - DIARRHOEA [None]
  - GOUT [None]
  - HEADACHE [None]
  - INCREASED UPPER AIRWAY SECRETION [None]
  - VOMITING [None]
